FAERS Safety Report 15356120 (Version 1)
Quarter: 2018Q3

REPORT INFORMATION
  Report Type: Spontaneous
  Country: US (occurrence: US)
  Receive Date: 20180906
  Receipt Date: 20180906
  Transmission Date: 20181010
  Serious: No
  Sender: FDA-Public Use
  Company Number: US-PFIZER INC-2018359110

PATIENT
  Sex: Female

DRUGS (3)
  1. LYRICA [Suspect]
     Active Substance: PREGABALIN
     Dosage: ^WAS TRYING TO CUT BACK/SHE WAS SLOWLY TAPERING OFF^
  2. LYRICA [Suspect]
     Active Substance: PREGABALIN
     Dosage: 1 DF, DAILY (TAKING 1 CAPSULE A DAY, QTY: 90(NINETY))
  3. LYRICA [Suspect]
     Active Substance: PREGABALIN
     Dosage: UNK, 2X/DAY

REACTIONS (2)
  - Intentional product use issue [Unknown]
  - Weight increased [Unknown]
